FAERS Safety Report 12351647 (Version 1)
Quarter: 2016Q2

REPORT INFORMATION
  Report Type: Spontaneous
  Country: PL (occurrence: PL)
  Receive Date: 20160510
  Receipt Date: 20160510
  Transmission Date: 20160815
  Serious: Yes (Other)
  Sender: FDA-Public Use
  Company Number: PL-IMPAX LABORATORIES, INC-2016-IPXL-00234

PATIENT
  Age: 30 Year
  Sex: Female

DRUGS (1)
  1. ALBENZA [Suspect]
     Active Substance: ALBENDAZOLE
     Indication: INFECTION PROPHYLAXIS
     Dosage: 400 MG, 1 /DAY
     Route: 065
     Dates: start: 20160219, end: 20160220

REACTIONS (2)
  - Abortion spontaneous [Unknown]
  - Exposure during pregnancy [Unknown]

NARRATIVE: CASE EVENT DATE: 2016
